FAERS Safety Report 5677882-9 (Version None)
Quarter: 2008Q1

REPORT INFORMATION
  Report Type: 
  Country: None (occurrence: None)
  Receive Date: 20080319
  Receipt Date: 20080307
  Transmission Date: 20080703
  Serious: Yes (Other)
  Sender: FDA-Public Use
  Company Number: 232335J08USA

PATIENT
  Age: 44 Year
  Sex: Female
  Weight: 84.369 kg

DRUGS (5)
  1. REBIF [Suspect]
     Indication: MULTIPLE SCLEROSIS
     Dosage: 44 MCG, 3 IN 1 WEEKS, SUBCUTANEOUS
     Route: 058
     Dates: start: 20060913, end: 20080219
  2. CARBATROL [Suspect]
     Indication: GAIT DISTURBANCE
     Dosage: 200 MG, 1 IN 1 DAYS, NOT REPORTED
     Dates: start: 20060901, end: 20080220
  3. GABAPENTIN [Suspect]
     Indication: NEURALGIA
     Dosage: NOT REPORTED, AS REQUIRED, NOT REPORTED
     Dates: start: 20060301, end: 20080320
  4. TYLENOL [Suspect]
     Indication: INSOMNIA
     Dosage: NOT REPORTED, AS REQUIRED, NOT REPORTED
     Dates: end: 20080220
  5. ADVIL [Concomitant]

REACTIONS (11)
  - ALANINE AMINOTRANSFERASE INCREASED [None]
  - ASPARTATE AMINOTRANSFERASE INCREASED [None]
  - BLOOD BILIRUBIN INCREASED [None]
  - CHROMATURIA [None]
  - DRUG TOXICITY [None]
  - INSOMNIA [None]
  - NAUSEA [None]
  - OCULAR ICTERUS [None]
  - OPTIC NEURITIS [None]
  - SKIN DISCOLOURATION [None]
  - VOMITING [None]
